FAERS Safety Report 22032298 (Version 2)
Quarter: 2023Q1

REPORT INFORMATION
  Report Type: Spontaneous
  Country: JP (occurrence: JP)
  Receive Date: 20230224
  Receipt Date: 20230307
  Transmission Date: 20230417
  Serious: Yes (Other)
  Sender: FDA-Public Use
  Company Number: JP-BEH-2023155436

PATIENT
  Age: 14 Year
  Sex: Male

DRUGS (1)
  1. HUMAN IMMUNOGLOBULIN G [Suspect]
     Active Substance: HUMAN IMMUNOGLOBULIN G
     Indication: Guillain-Barre syndrome
     Dosage: UNK
     Route: 042

REACTIONS (7)
  - Chronic inflammatory demyelinating polyradiculoneuropathy [Recovering/Resolving]
  - Facial paralysis [Unknown]
  - Urinary retention [Unknown]
  - Gait disturbance [Unknown]
  - No adverse event [Unknown]
  - Product use in unapproved indication [Unknown]
  - Drug ineffective for unapproved indication [Unknown]
